FAERS Safety Report 23936340 (Version 1)
Quarter: 2024Q2

REPORT INFORMATION
  Report Type: Spontaneous
  Country: CA (occurrence: CA)
  Receive Date: 20240604
  Receipt Date: 20240604
  Transmission Date: 20240716
  Serious: Yes (Hospitalization, Other)
  Sender: FDA-Public Use
  Company Number: CA-B.Braun Medical Inc.-2157717

PATIENT
  Age: 45 Year
  Sex: Female
  Weight: 95 kg

DRUGS (27)
  1. DEXTROSE [Suspect]
     Active Substance: DEXTROSE\DEXTROSE MONOHYDRATE
  2. ASPIRIN [Suspect]
     Active Substance: ASPIRIN
  3. VITAMIN D [Suspect]
     Active Substance: VITAMIN D NOS
  4. DIETARY SUPPLEMENT [Suspect]
     Active Substance: DIETARY SUPPLEMENT
  5. TIOTROPIUM BROMIDE MONOHYDRATE [Suspect]
     Active Substance: TIOTROPIUM BROMIDE MONOHYDRATE
  6. SYMBICORT [Suspect]
     Active Substance: BUDESONIDE\FORMOTEROL FUMARATE DIHYDRATE
  7. SPIRIVA [Suspect]
     Active Substance: TIOTROPIUM BROMIDE MONOHYDRATE
  8. SINGULAIR [Suspect]
     Active Substance: MONTELUKAST SODIUM
  9. ALBUTEROL [Suspect]
     Active Substance: ALBUTEROL
  10. PANTOPRAZOLE SODIUM [Suspect]
     Active Substance: PANTOPRAZOLE SODIUM
  11. PANTOPRAZOLE [Suspect]
     Active Substance: PANTOPRAZOLE
  12. LEVOTHYROXINE SODIUM [Suspect]
     Active Substance: LEVOTHYROXINE SODIUM
  13. FERROUS SULFATE ANHYDROUS [Suspect]
     Active Substance: FERROUS SULFATE ANHYDROUS
  14. HUMALOG [Suspect]
     Active Substance: INSULIN LISPRO
  15. ASCORBIC ACID [Suspect]
     Active Substance: ASCORBIC ACID
  16. FOLIC ACID [Suspect]
     Active Substance: FOLIC ACID
  17. FERROUS SULFATE [Suspect]
     Active Substance: FERROUS SULFATE
  18. ERGOCALCIFEROL [Suspect]
     Active Substance: ERGOCALCIFEROL
  19. LEVOTHYROXINE [Suspect]
     Active Substance: LEVOTHYROXINE\LEVOTHYROXINE SODIUM
  20. CHOLECALCIFEROL [Suspect]
     Active Substance: CHOLECALCIFEROL
  21. CALCIUM CARBONATE [Suspect]
     Active Substance: CALCIUM CARBONATE
  22. BUDESONIDE\FORMOTEROL FUMARATE [Suspect]
     Active Substance: BUDESONIDE\FORMOTEROL FUMARATE
  23. BUDESONIDE [Suspect]
     Active Substance: BUDESONIDE
  24. FLUTICASONE FUROATE [Suspect]
     Active Substance: FLUTICASONE FUROATE
  25. ATORVASTATIN CALCIUM [Suspect]
     Active Substance: ATORVASTATIN CALCIUM
  26. ASPIRIN [Suspect]
     Active Substance: ASPIRIN
  27. ASCORBIC ACID [Suspect]
     Active Substance: ASCORBIC ACID

REACTIONS (20)
  - Asthma [Unknown]
  - Wheezing [Unknown]
  - Throat clearing [Unknown]
  - Therapeutic product effect incomplete [Unknown]
  - Sleep disorder due to a general medical condition [Unknown]
  - Sinusitis [Unknown]
  - Secretion discharge [Unknown]
  - Rhinorrhoea [Unknown]
  - Respiratory tract infection [Unknown]
  - Obstructive airways disorder [Unknown]
  - Nasal obstruction [Unknown]
  - Nasal congestion [Unknown]
  - Loss of personal independence in daily activities [Unknown]
  - Gastrooesophageal reflux disease [Unknown]
  - Full blood count abnormal [Unknown]
  - Eczema [Unknown]
  - Dyspnoea exertional [Unknown]
  - Dyspnoea [Unknown]
  - Drug ineffective [Unknown]
  - Chronic obstructive pulmonary disease [Unknown]
